FAERS Safety Report 5013965-4 (Version None)
Quarter: 2006Q2

REPORT INFORMATION
  Report Type: 
  Country: None (occurrence: None)
  Receive Date: 20060525
  Receipt Date: 20060509
  Transmission Date: 20061013
  Serious: Yes (Hospitalization)
  Sender: FDA-Public Use
  Company Number: FR200605001979

PATIENT
  Age: 82 Year
  Sex: Female

DRUGS (3)
  1. FORTEO [Suspect]
     Indication: OSTEOPOROSIS
     Dosage: 20 UG DAILY (1/D) SUBCUTANEOUS
     Route: 058
     Dates: start: 20060203
  2. FORTEO PEN (FORTEO PEN) [Concomitant]
  3. SERETIDE (FLUTICASONE PROPIONATE, SALMETEROL) [Concomitant]

REACTIONS (1)
  - PERICARDITIS [None]
